FAERS Safety Report 18158053 (Version 1)
Quarter: 2020Q3

REPORT INFORMATION
  Report Type: Spontaneous
  Country: US (occurrence: US)
  Receive Date: 20200817
  Receipt Date: 20200817
  Transmission Date: 20201103
  Serious: No
  Sender: FDA-Public Use
  Company Number: US-MEDEXUS PHARMA, INC.-2020MED00074

PATIENT
  Sex: Female
  Weight: 99.77 kg

DRUGS (4)
  1. RASUVO [Suspect]
     Active Substance: METHOTREXATE SODIUM
     Indication: RHEUMATOID ARTHRITIS
     Dosage: 25 MG, 1X/WEEK ON THURSDAYS INJECTED INTO STOMACH
     Route: 058
     Dates: start: 2020, end: 2020
  2. XELJANZ XR [Concomitant]
     Active Substance: TOFACITINIB CITRATE
     Indication: RHEUMATOID ARTHRITIS
     Dosage: 11 MG, 1X/DAY
     Route: 048
     Dates: start: 201909
  3. RASUVO [Suspect]
     Active Substance: METHOTREXATE SODIUM
     Dosage: 25 MG, 1X/WEEK ON THURSDAYS INJECTED INTO THIGH
     Route: 058
     Dates: start: 2020
  4. PREDNISONE. [Suspect]
     Active Substance: PREDNISONE
     Dosage: ^BEING TAPPERED OFF^

REACTIONS (4)
  - Pain [Not Recovered/Not Resolved]
  - Joint stiffness [Recovering/Resolving]
  - Arthralgia [Recovering/Resolving]
  - Burning sensation [Not Recovered/Not Resolved]

NARRATIVE: CASE EVENT DATE: 2020
